FAERS Safety Report 13596811 (Version 2)
Quarter: 2017Q2

REPORT INFORMATION
  Report Type: Spontaneous
  Country: GB (occurrence: GB)
  Receive Date: 20170531
  Receipt Date: 20170621
  Transmission Date: 20170830
  Serious: Yes (Other)
  Sender: FDA-Public Use
  Company Number: GB-AUROBINDO-AUR-APL-2017-34438

PATIENT
  Age: 47 Year
  Sex: Female
  Weight: 63 kg

DRUGS (4)
  1. NAPROXEN. [Suspect]
     Active Substance: NAPROXEN
     Dosage: 250 MG, 3 TIMES A DAY
     Route: 048
     Dates: start: 20121231, end: 20130119
  2. NAPROXEN. [Suspect]
     Active Substance: NAPROXEN
     Indication: ANALGESIC THERAPY
     Dosage: 250 MG, 3 TIMES A DAY
     Route: 048
     Dates: start: 20120222, end: 20120312
  3. NAPROXEN. [Suspect]
     Active Substance: NAPROXEN
     Dosage: 250 MG, 3 TIMES A DAY
     Route: 048
     Dates: start: 20120731, end: 20120819
  4. NAPROXEN. [Suspect]
     Active Substance: NAPROXEN
     Dosage: 250 MG, 3 TIMES A DAY
     Route: 048
     Dates: start: 20140630, end: 20140719

REACTIONS (2)
  - Tinnitus [Not Recovered/Not Resolved]
  - Deafness [Unknown]

NARRATIVE: CASE EVENT DATE: 20160701
